FAERS Safety Report 7247425-7 (Version None)
Quarter: 2011Q1

REPORT INFORMATION
  Report Type: 
  Country: None (occurrence: None)
  Receive Date: 20110127
  Receipt Date: 20110119
  Transmission Date: 20110831
  Serious: Yes (Other)
  Sender: FDA-Public Use
  Company Number: PHHY2011US04113

PATIENT
  Sex: Male

DRUGS (2)
  1. LOPRESSOR [Suspect]
  2. NORVASC [Concomitant]

REACTIONS (2)
  - IMPAIRED WORK ABILITY [None]
  - CEREBROVASCULAR ACCIDENT [None]
